FAERS Safety Report 6133228-3 (Version None)
Quarter: 2009Q1

REPORT INFORMATION
  Report Type: 
  Country: None (occurrence: None)
  Receive Date: 20090324
  Receipt Date: 20090324
  Transmission Date: 20090719
  Serious: Yes (Hospitalization)
  Sender: FDA-Public Use
  Company Number: None

PATIENT

DRUGS (10)
  1. DAUNORUBICIN HCL [Suspect]
     Indication: ACUTE LYMPHOCYTIC LEUKAEMIA
     Dosage: 41MG -25MG/M2- ONCE IV
     Route: 042
     Dates: start: 20090319, end: 20090319
  2. VINCRISTINE [Concomitant]
  3. PREDNISONE [Concomitant]
  4. ALLOPURINOL [Concomitant]
  5. CEFTAZIDIME [Concomitant]
  6. FLUCONAZOLE [Concomitant]
  7. LANSOPRAZOLE [Concomitant]
  8. PENTAMIDINE` [Concomitant]
  9. ONDANSETRON [Concomitant]
  10. HYDROMORPHONE HCL [Concomitant]

REACTIONS (2)
  - BRADYCARDIA [None]
  - SINUS ARRHYTHMIA [None]
